FAERS Safety Report 15692475 (Version 1)
Quarter: 2018Q4

REPORT INFORMATION
  Report Type: Spontaneous
  Country: US (occurrence: US)
  Receive Date: 20181206
  Receipt Date: 20181206
  Transmission Date: 20190205
  Serious: No
  Sender: FDA-Public Use
  Company Number: US-PURDUE-USA-2018-0142441

PATIENT
  Sex: Female

DRUGS (1)
  1. HYSINGLA ER [Suspect]
     Active Substance: HYDROCODONE BITARTRATE
     Indication: PAIN
     Dosage: UNK TABLET, Q24H
     Route: 048

REACTIONS (2)
  - Rash [Unknown]
  - Hypersensitivity [Unknown]
